FAERS Safety Report 15179505 (Version 2)
Quarter: 2018Q4

REPORT INFORMATION
  Report Type: Spontaneous
  Country: ES (occurrence: ES)
  Receive Date: 20180723
  Receipt Date: 20181007
  Transmission Date: 20190204
  Serious: Yes (Congenital Anomaly, Other)
  Sender: FDA-Public Use
  Company Number: ES-UCBSA-2018031173

PATIENT
  Sex: Female

DRUGS (4)
  1. EUTIROX [Concomitant]
     Active Substance: LEVOTHYROXINE SODIUM
     Indication: PRODUCT USED FOR UNKNOWN INDICATION
     Route: 064
  2. DEPAKINE [Suspect]
     Active Substance: VALPROATE SODIUM
     Indication: EPILEPSY
     Dosage: 500 MG, UNK
     Route: 064
     Dates: start: 201310, end: 20131105
  3. KEPPRA [Suspect]
     Active Substance: LEVETIRACETAM
     Indication: EPILEPSY
     Dosage: 500 MG, 2X/DAY (BID)
     Route: 064
     Dates: start: 20131029, end: 20140702
  4. ACFOL [Concomitant]
     Active Substance: FOLIC ACID
     Indication: PRODUCT USED FOR UNKNOWN INDICATION
     Route: 064

REACTIONS (6)
  - Oesophageal atresia [Recovered/Resolved with Sequelae]
  - Foetal exposure during pregnancy [Unknown]
  - Congenital tracheomalacia [Recovered/Resolved with Sequelae]
  - Renal aplasia [Not Recovered/Not Resolved]
  - Hypertelorism of orbit [Recovered/Resolved with Sequelae]
  - Foetal anticonvulsant syndrome [Recovered/Resolved with Sequelae]

NARRATIVE: CASE EVENT DATE: 20131029
